FAERS Safety Report 8889232 (Version 2)
Quarter: 2012Q4

REPORT INFORMATION
  Report Type: 
  Country: CA (occurrence: CA)
  Receive Date: 20121106
  Receipt Date: 20121113
  Transmission Date: 20130627
  Serious: Yes (Death)
  Sender: FDA-Public Use
  Company Number: CA-ASTRAZENECA-2012SE84065

PATIENT
  Age: 74 Year
  Sex: Female
  Weight: 36 kg

DRUGS (10)
  1. FASLODEX [Suspect]
     Indication: BREAST CANCER
     Route: 030
     Dates: start: 201106, end: 201206
  2. PAMIDRONATE [Concomitant]
     Indication: METASTASES TO BONE
     Route: 042
  3. CELEXA [Concomitant]
     Indication: ANXIETY
     Route: 048
  4. SYNTHROID [Concomitant]
     Route: 048
  5. ALDACTONE [Concomitant]
     Route: 048
  6. PANTOLOC [Concomitant]
     Route: 048
  7. ATIVAN [Concomitant]
     Dosage: 0.5 MG BID AND 1.0 MG AT NIGHT
     Route: 048
  8. SEROQUEL [Concomitant]
     Route: 048
  9. MAGNESIUM [Concomitant]
     Route: 048
  10. FLU VACCINE [Concomitant]
     Dosage: EVERY YEAR

REACTIONS (1)
  - Neoplasm progression [Fatal]
